FAERS Safety Report 7088487-X (Version None)
Quarter: 2010Q4

REPORT INFORMATION
  Report Type: 
  Country: None (occurrence: None)
  Receive Date: 20101108
  Receipt Date: 20101027
  Transmission Date: 20110411
  Serious: Yes (Other)
  Sender: FDA-Public Use
  Company Number: JP-ROCHE-738424

PATIENT
  Age: 67 Year
  Sex: Female

DRUGS (5)
  1. AVASTIN [Suspect]
     Indication: RECTAL CANCER
     Dosage: DOSAGE IS UNCERTAIN.
     Route: 041
     Dates: start: 20090601, end: 20100301
  2. ELPLAT [Concomitant]
     Dosage: DOSAGE IS UNCERTAIN.
     Route: 041
     Dates: start: 20090601, end: 20100301
  3. FLUOROURACIL [Concomitant]
     Dosage: DOSAGE IS UNCERTAIN.
     Route: 040
     Dates: start: 20090601, end: 20100301
  4. FLUOROURACIL [Concomitant]
     Dosage: DOSAGE IS UNCERTAIN.
     Route: 041
     Dates: start: 20090601, end: 20100301
  5. LEUCOVORIN CALCIUM [Concomitant]
     Dosage: DOSAGE IS UNCERTAIN.
     Route: 041
     Dates: start: 20090601, end: 20100301

REACTIONS (2)
  - COMPRESSION FRACTURE [None]
  - DUODENAL PERFORATION [None]
